FAERS Safety Report 22356275 (Version 1)
Quarter: 2023Q2

REPORT INFORMATION
  Report Type: Spontaneous
  Country: CN (occurrence: CN)
  Receive Date: 20230523
  Receipt Date: 20230523
  Transmission Date: 20230721
  Serious: Yes (Other)
  Sender: FDA-Public Use
  Company Number: CN-ORGANON-O2305CHN002083

PATIENT
  Age: 54 Year
  Sex: Female
  Weight: 67 kg

DRUGS (1)
  1. SINGULAIR [Suspect]
     Active Substance: MONTELUKAST SODIUM
     Indication: Asthma
     Dosage: 1 TABLET, QD
     Route: 048
     Dates: start: 20230312, end: 20230513

REACTIONS (2)
  - Arrhythmia [Recovering/Resolving]
  - Palpitations [Recovered/Resolved]

NARRATIVE: CASE EVENT DATE: 20230313
